FAERS Safety Report 25257764 (Version 2)
Quarter: 2025Q2

REPORT INFORMATION
  Report Type: Report from Study
  Country: US (occurrence: US)
  Receive Date: 20250430
  Receipt Date: 20250508
  Transmission Date: 20250716
  Serious: Yes (Other)
  Sender: ABBVIE
  Company Number: US-ABBVIE-6251712

PATIENT
  Age: 62 Year
  Sex: Male

DRUGS (1)
  1. HUMIRA [Suspect]
     Active Substance: ADALIMUMAB
     Indication: Product used for unknown indication
     Route: 058
     Dates: start: 20190407

REACTIONS (4)
  - Papilloma [Recovering/Resolving]
  - Pharyngeal polyp [Recovering/Resolving]
  - Nasal disorder [Recovering/Resolving]
  - Precancerous cells present [Recovered/Resolved]

NARRATIVE: CASE EVENT DATE: 20230101
